FAERS Safety Report 5296174-3 (Version None)
Quarter: 2007Q2

REPORT INFORMATION
  Report Type: 
  Country: None (occurrence: None)
  Receive Date: 20070413
  Receipt Date: 20070410
  Transmission Date: 20071010
  Serious: Yes (Other)
  Sender: FDA-Public Use
  Company Number: US-GLAXOSMITHKLINE-A0627284A

PATIENT
  Sex: Male

DRUGS (1)
  1. AVODART [Suspect]
     Dosage: .5MG UNKNOWN
     Route: 048

REACTIONS (2)
  - ADVERSE EVENT [None]
  - JAUNDICE [None]
